FAERS Safety Report 5217967-4 (Version None)
Quarter: 2007Q1

REPORT INFORMATION
  Report Type: 
  Country: None (occurrence: None)
  Receive Date: 20070124
  Receipt Date: 20070115
  Transmission Date: 20070707
  Serious: Yes (Hospitalization)
  Sender: FDA-Public Use
  Company Number: PHRM2007FR00546

PATIENT
  Age: 75 Year
  Sex: Male

DRUGS (5)
  1. LESCOL [Suspect]
     Dosage: UNK, UNK
     Route: 048
  2. VAXIGRIP [Suspect]
     Dosage: 1 DF, ONCE/SINGLE
     Route: 030
     Dates: start: 20061203, end: 20061203
  3. ASPIRIN [Suspect]
     Dosage: UNK, UNK
     Route: 048
  4. COVERSYL /FRA/ [Suspect]
     Dosage: 2 MG/DAY
     Route: 048
  5. DETENSIEL [Suspect]
     Dosage: UNK, UNK
     Route: 048

REACTIONS (10)
  - BRONCHITIS [None]
  - C-REACTIVE PROTEIN INCREASED [None]
  - CARDIAC MURMUR [None]
  - ECCHYMOSIS [None]
  - MEAN PLATELET VOLUME INCREASED [None]
  - PALPABLE PURPURA [None]
  - PLATELET COUNT DECREASED [None]
  - PYREXIA [None]
  - RASH ERYTHEMATOUS [None]
  - VASCULAR PURPURA [None]
